FAERS Safety Report 4860775-4 (Version None)
Quarter: 2005Q4

REPORT INFORMATION
  Report Type: 
  Country: None (occurrence: None)
  Receive Date: 20051216
  Receipt Date: 20051206
  Transmission Date: 20060501
  Serious: Yes (Other)
  Sender: FDA-Public Use
  Company Number: NL200512000710

PATIENT
  Age: 9 Year
  Sex: Male

DRUGS (2)
  1. STRATTERA [Suspect]
     Dates: start: 20051018
  2. EPA (OMEGA-3 TRIGLYCERIDES) [Concomitant]

REACTIONS (1)
  - HEPATIC NEOPLASM MALIGNANT [None]
